FAERS Safety Report 5306740-4 (Version None)
Quarter: 2007Q2

REPORT INFORMATION
  Report Type: 
  Country: None (occurrence: None)
  Receive Date: 20070419
  Receipt Date: 20070405
  Transmission Date: 20071010
  Serious: Yes (Other)
  Sender: FDA-Public Use
  Company Number: 20070101/

PATIENT
  Age: 37 Year
  Sex: Female

DRUGS (2)
  1. VENOFER [Suspect]
     Indication: IRON DEFICIENCY ANAEMIA
     Dosage: 200 MG X 1 INTRAVENOUS
     Route: 042
  2. NEUTROFER (FERROUS GLYCINATE) [Concomitant]

REACTIONS (7)
  - ABDOMINAL PAIN [None]
  - DIARRHOEA [None]
  - HYPERSENSITIVITY [None]
  - HYPOTENSION [None]
  - PARAESTHESIA [None]
  - PERIPHERAL COLDNESS [None]
  - SPEECH DISORDER [None]
